FAERS Safety Report 6249953-X (Version None)
Quarter: 2009Q2

REPORT INFORMATION
  Report Type: 
  Country: None (occurrence: None)
  Receive Date: 20090625
  Receipt Date: 20090622
  Transmission Date: 20091009
  Serious: Yes (Life-Threatening)
  Sender: FDA-Public Use
  Company Number: 2009TJ0141

PATIENT
  Age: 55 Year
  Sex: Female

DRUGS (1)
  1. TWINJECT 0.3 [Suspect]
     Indication: HYPERSENSITIVITY
     Dosage: 0.3MG, AS NEEDED
     Dates: start: 20090621, end: 20090621

REACTIONS (3)
  - COMPLICATION OF DEVICE INSERTION [None]
  - DEVICE FAILURE [None]
  - URTICARIA [None]
